FAERS Safety Report 13653395 (Version 1)
Quarter: 2017Q2

REPORT INFORMATION
  Report Type: Spontaneous
  Country: US (occurrence: US)
  Receive Date: 20170614
  Receipt Date: 20170614
  Transmission Date: 20170830
  Serious: No
  Sender: FDA-Public Use
  Company Number: US-ROCHE-651784

PATIENT
  Age: 74 Year
  Sex: Female

DRUGS (1)
  1. XELODA [Suspect]
     Active Substance: CAPECITABINE
     Indication: COLORECTAL CANCER METASTATIC
     Dosage: DOSAGE FOR; 500 MG AND 150 MG TABLETS
     Route: 048

REACTIONS (6)
  - Pain in extremity [Unknown]
  - Pyrexia [Unknown]
  - Pain [Unknown]
  - Insomnia [Unknown]
  - Neuropathy peripheral [Unknown]
  - Nausea [Unknown]
